FAERS Safety Report 7754091-0 (Version None)
Quarter: 2011Q3

REPORT INFORMATION
  Report Type: 
  Country: None (occurrence: None)
  Receive Date: 20110913
  Receipt Date: 20110830
  Transmission Date: 20111222
  Serious: Yes (Hospitalization, Other)
  Sender: FDA-Public Use
  Company Number: 2011MA012736

PATIENT
  Age: 60 Year
  Sex: Female

DRUGS (7)
  1. CEFOTAXIME SODIUM [Suspect]
     Indication: SPINAL ANAESTHESIA
     Dosage: IV
     Route: 042
  2. MEPERIDINE HYDROCHLORIDE [Suspect]
     Indication: SEDATION
     Dosage: 50 MG;IM
     Route: 030
  3. MEPERIDINE HYDROCHLORIDE [Suspect]
     Indication: ANALGESIC THERAPY
     Dosage: 50 MG;IM
     Route: 030
  4. DICLOFENAC SODIUM [Suspect]
     Indication: POSTOPERATIVE CARE
     Dosage: BID;PO
     Route: 048
  5. METRONIDAZOLE [Suspect]
     Indication: SPINAL ANAESTHESIA
     Dosage: IV
     Route: 042
  6. PROMETHAZINE [Suspect]
     Indication: ANALGESIC THERAPY
     Dosage: 12.5 MG;IM
     Route: 030
  7. PROMETHAZINE [Suspect]
     Indication: SEDATION
     Dosage: 12.5 MG;IM
     Route: 030

REACTIONS (19)
  - PURPURA [None]
  - PALLOR [None]
  - HAEMATEMESIS [None]
  - INJECTION SITE HAEMATOMA [None]
  - BLOOD CREATININE INCREASED [None]
  - ABDOMINAL PAIN LOWER [None]
  - EPISTAXIS [None]
  - VAGINAL HAEMORRHAGE [None]
  - HAEMOGLOBIN DECREASED [None]
  - BLEEDING TIME PROLONGED [None]
  - HAEMATURIA [None]
  - GINGIVAL BLEEDING [None]
  - PLATELET MORPHOLOGY ABNORMAL [None]
  - ECCHYMOSIS [None]
  - BLOOD UREA INCREASED [None]
  - THROMBOCYTOPENIA [None]
  - URINARY RETENTION [None]
  - POST PROCEDURAL COMPLICATION [None]
  - HAEMATOCOELE [None]
